FAERS Safety Report 15956747 (Version 1)
Quarter: 2019Q1

REPORT INFORMATION
  Report Type: Report from Study
  Country: US (occurrence: US)
  Receive Date: 20190213
  Receipt Date: 20190213
  Transmission Date: 20190417
  Serious: Yes (Hospitalization)
  Sender: FDA-Public Use
  Company Number: US-PFIZER INC-2019058676

PATIENT
  Age: 29 Month
  Sex: Female
  Weight: 11 kg

DRUGS (7)
  1. METHOTREXATE SODIUM. [Suspect]
     Active Substance: METHOTREXATE SODIUM
     Indication: LEUKAEMIA
     Dosage: 10 MG, WEEKLY;
     Route: 037
     Dates: start: 20181101, end: 20181121
  2. INCB018424 [Suspect]
     Active Substance: RUXOLITINIB
     Indication: LEUKAEMIA
     Dosage: 25 MG, 2X/DAY
     Route: 048
     Dates: start: 20181101
  3. PEGASPARGASE [Suspect]
     Active Substance: PEGASPARGASE
     Indication: LEUKAEMIA
     Dosage: 1325 IU, SINGLE
     Route: 042
     Dates: start: 20181114
  4. MERCAPTOPURINE. [Suspect]
     Active Substance: MERCAPTOPURINE
     Indication: LEUKAEMIA
     Dosage: 25MG PO X5, PO 50MG X2
     Route: 048
     Dates: start: 20181101
  5. CYCLOPHOSPHAMIDE. [Suspect]
     Active Substance: CYCLOPHOSPHAMIDE
     Indication: LEUKAEMIA
     Dosage: 530 MG, ONCE, DAYS 1 AND 29
     Route: 042
     Dates: start: 20181102
  6. VINCRISTINE SULFATE. [Suspect]
     Active Substance: VINCRISTINE SULFATE
     Indication: LEUKAEMIA
     Dosage: 0.8 MG, ONCE, DAYS 15 AND 22
     Route: 042
     Dates: start: 20181114, end: 20181121
  7. CYTARABINE. [Suspect]
     Active Substance: CYTARABINE
     Indication: LEUKAEMIA
     Dosage: 40 MG, QD (IV AND SC)
     Route: 051
     Dates: start: 20181102

REACTIONS (3)
  - Febrile neutropenia [Recovered/Resolved]
  - Febrile neutropenia [Recovering/Resolving]
  - Pseudomonal bacteraemia [Recovered/Resolved]

NARRATIVE: CASE EVENT DATE: 20181121
